FAERS Safety Report 23789417 (Version 5)
Quarter: 2024Q3

REPORT INFORMATION
  Report Type: Spontaneous
  Country: US (occurrence: US)
  Receive Date: 20240426
  Receipt Date: 20240924
  Transmission Date: 20241017
  Serious: No
  Sender: PFIZER
  Company Number: US-PFIZER INC-202400085578

PATIENT
  Age: 14 Year
  Sex: Female

DRUGS (2)
  1. GENOTROPIN [Suspect]
     Active Substance: SOMATROPIN
     Dosage: ALTERNATING 1.2 MG + 1.4MG DAILY
  2. GENOTROPIN [Suspect]
     Active Substance: SOMATROPIN
     Dosage: ALTERNATING 1.2 MG + 1.4MG DAILY

REACTIONS (2)
  - Device failure [Unknown]
  - Device malfunction [Unknown]
